FAERS Safety Report 21791896 (Version 1)
Quarter: 2022Q4

REPORT INFORMATION
  Report Type: Spontaneous
  Country: CA (occurrence: None)
  Receive Date: 20221229
  Receipt Date: 20221229
  Transmission Date: 20230113
  Serious: Yes (Other)
  Sender: FDA-Public Use
  Company Number: CA-ROCHE-3252899

PATIENT
  Age: 28 Year
  Sex: Male

DRUGS (1)
  1. RITUXIMAB [Suspect]
     Active Substance: RITUXIMAB
     Indication: Immune thrombocytopenia
     Route: 065

REACTIONS (5)
  - Asthenia [Unknown]
  - COVID-19 [Unknown]
  - Gait disturbance [Unknown]
  - Platelet count decreased [Unknown]
  - Off label use [Unknown]
